FAERS Safety Report 8263136-3 (Version None)
Quarter: 2012Q2

REPORT INFORMATION
  Report Type: 
  Country: None (occurrence: None)
  Receive Date: 20120405
  Receipt Date: 20120326
  Transmission Date: 20120825
  Serious: Yes (Hospitalization, Other)
  Sender: FDA-Public Use
  Company Number: NL-MEDIMMUNE-MEDI-0014983

PATIENT
  Sex: Female
  Weight: 10.03 kg

DRUGS (5)
  1. DIURETICS [Concomitant]
  2. ESOMEPRAZOLE SODIUM [Concomitant]
  3. AMOXICILLIN [Concomitant]
     Dates: start: 20120203, end: 20120213
  4. SYNAGIS [Suspect]
     Indication: HEART DISEASE CONGENITAL
     Route: 030
     Dates: start: 20110101, end: 20111001
  5. SYNAGIS [Suspect]
     Route: 030
     Dates: start: 20120109, end: 20120216

REACTIONS (8)
  - URINARY TRACT INFECTION [None]
  - FEEDING DISORDER [None]
  - CRYING [None]
  - INAPPROPRIATE SCHEDULE OF DRUG ADMINISTRATION [None]
  - PYREXIA [None]
  - UNEVALUABLE EVENT [None]
  - VOMITING [None]
  - HIATUS HERNIA [None]
